FAERS Safety Report 25902815 (Version 1)
Quarter: 2025Q4

REPORT INFORMATION
  Report Type: Spontaneous
  Country: EU (occurrence: EU)
  Receive Date: 20251009
  Receipt Date: 20251009
  Transmission Date: 20260118
  Serious: Yes (Other)
  Sender: TAKEDA
  Company Number: EU-TAKEDA-2025TUS088540

PATIENT
  Age: 48 Year
  Sex: Male

DRUGS (2)
  1. ICLUSIG [Suspect]
     Active Substance: PONATINIB HYDROCHLORIDE
     Indication: Chronic myeloid leukaemia
     Dosage: 30 MILLIGRAM, QD
     Dates: start: 20200408
  2. NILOTINIB [Suspect]
     Active Substance: NILOTINIB
     Indication: Chronic myeloid leukaemia
     Dosage: 300 MILLIGRAM, Q12H
     Dates: start: 20190101

REACTIONS (9)
  - Diverticulitis [Recovering/Resolving]
  - Treatment failure [Unknown]
  - Hypertension [Recovered/Resolved]
  - Angina pectoris [Recovering/Resolving]
  - Drug resistance [Unknown]
  - Palpitations [Recovering/Resolving]
  - Echocardiogram abnormal [Recovering/Resolving]
  - Irritable bowel syndrome [Recovered/Resolved]
  - Abdominal distension [Recovering/Resolving]

NARRATIVE: CASE EVENT DATE: 20210921
